FAERS Safety Report 5252950-4 (Version None)
Quarter: 2007Q1

REPORT INFORMATION
  Report Type: 
  Country: None (occurrence: None)
  Receive Date: 20070227
  Receipt Date: 20070219
  Transmission Date: 20070707
  Serious: Yes (Death)
  Sender: FDA-Public Use
  Company Number: 153154ISR

PATIENT
  Age: 26 Year
  Sex: Male

DRUGS (2)
  1. DIAZEPAM [Suspect]
  2. FENTANYL [Suspect]

REACTIONS (1)
  - INTENTIONAL DRUG MISUSE [None]
